FAERS Safety Report 4366554-9 (Version None)
Quarter: 2004Q2

REPORT INFORMATION
  Report Type: 
  Country: None (occurrence: None)
  Receive Date: 20040527
  Receipt Date: 20030407
  Transmission Date: 20050107
  Serious: Yes (Hospitalization, Disabling, Other)
  Sender: FDA-Public Use
  Company Number: US-MERCK-0304USA00822

PATIENT
  Age: 61 Year
  Sex: Female
  Weight: 84 kg

DRUGS (16)
  1. DARVOCET-N 100 [Concomitant]
     Route: 065
  2. AMITRIPTYLINE HYDROCHLORIDE [Concomitant]
     Route: 065
  3. ASPIRIN [Concomitant]
     Route: 065
  4. ATENOLOL [Concomitant]
     Route: 065
  5. PEPCID [Concomitant]
     Route: 065
  6. LASIX [Concomitant]
     Route: 065
     Dates: start: 19600101
  7. HYDRODIURIL [Concomitant]
     Route: 065
     Dates: start: 19600101
  8. INSULIN, BIPHASIC ISOPHANE [INJECTION] [Concomitant]
     Route: 065
  9. SYNTHROID [Concomitant]
     Route: 065
  10. ALUPENT [Concomitant]
     Route: 065
  11. ZAROXOLYN [Concomitant]
     Route: 065
  12. NIACIN [Concomitant]
     Route: 065
  13. POTASSIUM (UNSPECIFIED) [Concomitant]
     Route: 065
  14. VIOXX [Suspect]
     Indication: BACK PAIN
     Route: 048
     Dates: end: 20000608
  15. DYRENIUM [Concomitant]
     Route: 065
     Dates: end: 20000608
  16. VITAMINS (UNSPECIFIED) [Concomitant]
     Route: 065

REACTIONS (49)
  - ACUTE CORONARY SYNDROME [None]
  - ACUTE MYOCARDIAL INFARCTION [None]
  - ADRENAL MASS [None]
  - ANGINA UNSTABLE [None]
  - ASTHENIA [None]
  - BACTERIURIA [None]
  - BRONCHITIS ACUTE [None]
  - CARDIAC FAILURE CONGESTIVE [None]
  - CATARACT [None]
  - CONJUNCTIVITIS [None]
  - CORONARY ARTERY DISEASE [None]
  - CYSTITIS [None]
  - DEPRESSION [None]
  - DIABETIC NEPHROPATHY [None]
  - DIABETIC NEUROPATHY [None]
  - DIABETIC RETINAL OEDEMA [None]
  - DIABETIC RETINOPATHY [None]
  - ESCHERICHIA URINARY TRACT INFECTION [None]
  - FALL [None]
  - FATIGUE [None]
  - GASTROOESOPHAGEAL REFLUX DISEASE [None]
  - HEADACHE [None]
  - HEARING IMPAIRED [None]
  - HYPERTENSION [None]
  - HYPOGLYCAEMIA [None]
  - LACUNAR INFARCTION [None]
  - LIPIDS INCREASED [None]
  - LUNG NEOPLASM [None]
  - MACULOPATHY [None]
  - MASS [None]
  - METABOLIC ALKALOSIS [None]
  - NOCTURIA [None]
  - PLEURAL EFFUSION [None]
  - PROTEINURIA [None]
  - PULMONARY HYPERTENSION [None]
  - RADIUS FRACTURE [None]
  - RECTAL HAEMORRHAGE [None]
  - RENAL CYST [None]
  - RENAL FAILURE CHRONIC [None]
  - SCOLIOSIS [None]
  - SEASONAL ALLERGY [None]
  - SINUSITIS [None]
  - SKIN LESION [None]
  - SPINAL COLUMN STENOSIS [None]
  - STASIS DERMATITIS [None]
  - VAGINITIS [None]
  - VENTRICULAR HYPERTROPHY [None]
  - WEIGHT INCREASED [None]
  - WRIST FRACTURE [None]
